FAERS Safety Report 6307944-4 (Version None)
Quarter: 2009Q3

REPORT INFORMATION
  Report Type: 
  Country: None (occurrence: None)
  Receive Date: 20090813
  Receipt Date: 20090810
  Transmission Date: 20100115
  Serious: Yes (Hospitalization)
  Sender: FDA-Public Use
  Company Number: US-ELI_LILLY_AND_COMPANY-US200908001939

PATIENT
  Sex: Female

DRUGS (8)
  1. HUMULIN N [Suspect]
  2. HUMULIN R [Suspect]
  3. TRIAMTERENE AND HYDROCHLOROTHIAZIDE [Concomitant]
     Indication: HYPERTENSION
  4. ALPRAZOLAM [Concomitant]
  5. AMLODIPINE [Concomitant]
  6. ASPIRIN [Concomitant]
  7. METOPROLOL [Concomitant]
     Indication: HYPERTENSION
  8. LEVOTHYROXINE [Concomitant]

REACTIONS (7)
  - BLOOD GLUCOSE DECREASED [None]
  - CARDIAC DISORDER [None]
  - DIABETIC RETINOPATHY [None]
  - FALL [None]
  - HYPERTENSION [None]
  - RIB FRACTURE [None]
  - VISUAL ACUITY REDUCED [None]
